FAERS Safety Report 21816206 (Version 1)
Quarter: 2023Q1

REPORT INFORMATION
  Report Type: Report from Study
  Country: CA (occurrence: CA)
  Receive Date: 20230104
  Receipt Date: 20230104
  Transmission Date: 20230417
  Serious: Yes (Other)
  Sender: FDA-Public Use
  Company Number: CA-BAUSCH-BL-2022-016233

PATIENT
  Sex: Male

DRUGS (4)
  1. CONTRAVE [Suspect]
     Active Substance: BUPROPION HYDROCHLORIDE\NALTREXONE HYDROCHLORIDE
     Indication: Weight control
     Dosage: 90/8MG (1 IN 24 HR)
     Route: 048
     Dates: start: 2022, end: 2022
  2. CONTRAVE [Suspect]
     Active Substance: BUPROPION HYDROCHLORIDE\NALTREXONE HYDROCHLORIDE
     Dosage: 90/8MG (1 DOSAGE FORMS,1 IN 12 HR)
     Route: 048
     Dates: start: 2022, end: 20220603
  3. CONTRAVE [Suspect]
     Active Substance: BUPROPION HYDROCHLORIDE\NALTREXONE HYDROCHLORIDE
     Dosage: 90/8MG, 1 TAB DAILY
     Route: 048
     Dates: start: 202210, end: 202211
  4. OZEMPIC [Suspect]
     Active Substance: SEMAGLUTIDE
     Indication: Diabetes mellitus
     Dosage: WEEKLY (1 IN 1 WK)
     Route: 065
     Dates: end: 202207

REACTIONS (6)
  - Pancreatitis [Unknown]
  - Middle insomnia [Recovered/Resolved]
  - Tension headache [Recovered/Resolved]
  - Fatigue [Unknown]
  - Therapy cessation [Unknown]
  - Drug titration error [Unknown]

NARRATIVE: CASE EVENT DATE: 20220101
